FAERS Safety Report 7860319-9 (Version None)
Quarter: 2011Q4

REPORT INFORMATION
  Report Type: 
  Country: None (occurrence: None)
  Receive Date: 20111027
  Receipt Date: 20111017
  Transmission Date: 20120403
  Serious: Yes (Other)
  Sender: FDA-Public Use
  Company Number: US-AMGEN-USASP2011045373

PATIENT
  Age: 83 Year
  Sex: Female

DRUGS (2)
  1. ENBREL [Suspect]
     Indication: RHEUMATOID ARTHRITIS
     Dosage: 50 MG, QWK
     Dates: start: 20110802
  2. TREXALL [Concomitant]
     Dosage: 6 MG, QWK
     Dates: start: 20090901

REACTIONS (5)
  - JOINT SWELLING [None]
  - TENDON DISORDER [None]
  - VARICOSE VEIN [None]
  - OSTEOPOROSIS [None]
  - ROTATOR CUFF SYNDROME [None]
